FAERS Safety Report 10003958 (Version 1)
Quarter: 2014Q1

REPORT INFORMATION
  Report Type: Spontaneous
  Country: FR (occurrence: FR)
  Receive Date: 20140312
  Receipt Date: 20140312
  Transmission Date: 20141002
  Serious: Yes (Death)
  Sender: FDA-Public Use
  Company Number: PHHY2014FR029809

PATIENT
  Age: 43 Year
  Sex: Male

DRUGS (3)
  1. MYFORTIC [Suspect]
     Indication: RENAL TRANSPLANT
     Dosage: 360 MG, (VARIABLE DOSAGE BETWEEN 720 AND 1440 MG DAILY)
     Route: 048
     Dates: start: 20110302, end: 20111031
  2. CORTANCYL [Suspect]
     Indication: RENAL TRANSPLANT
     Dosage: VARIABLE DOSAGE BETWEEN 7.5 AND 65 MG DAILY
     Route: 048
     Dates: start: 20110302
  3. PROGRAF [Suspect]
     Indication: RENAL TRANSPLANT
     Dosage: 10 MG, VARIABLE DOSAGE BETWEEN 10 AND 20 MG DAILY
     Route: 048
     Dates: start: 20110302, end: 20140204

REACTIONS (1)
  - Kaposi^s sarcoma [Fatal]
